FAERS Safety Report 4506863-3 (Version None)
Quarter: 2004Q4

REPORT INFORMATION
  Report Type: 
  Country: None (occurrence: None)
  Receive Date: 20041117
  Receipt Date: 20041105
  Transmission Date: 20050328
  Serious: Yes (Other)
  Sender: FDA-Public Use
  Company Number: 2004S1000255

PATIENT
  Age: 61 Year
  Sex: Female

DRUGS (3)
  1. CUBICIN [Suspect]
     Indication: OSTEOMYELITIS
     Dosage: 6 MG/KG;Q24H;IV
     Route: 042
  2. CUBICIN [Suspect]
     Indication: STAPHYLOCOCCAL BACTERAEMIA
     Dosage: 6 MG/KG;Q24H;IV
     Route: 042
  3. VANCOMYCIN [Concomitant]

REACTIONS (2)
  - DISEASE RECURRENCE [None]
  - STAPHYLOCOCCAL BACTERAEMIA [None]
